FAERS Safety Report 5931235-4 (Version None)
Quarter: 2008Q4

REPORT INFORMATION
  Report Type: 
  Country: None (occurrence: None)
  Receive Date: 20081023
  Receipt Date: 20081009
  Transmission Date: 20090506
  Serious: Yes (Hospitalization)
  Sender: FDA-Public Use
  Company Number: IDA-00128

PATIENT
  Age: 70 Year
  Sex: Female

DRUGS (4)
  1. INDERAL [Suspect]
     Indication: SINUS TACHYCARDIA
     Dosage: 10 MG ORAL FORMULATION: TABLET
     Route: 048
     Dates: start: 20080801, end: 20080819
  2. LULLAN (PEROSPIRONE HYDROCHLORIDE) [Suspect]
     Indication: AUTONOMIC NERVOUS SYSTEM IMBALANCE
     Dosage: 8 MG ORAL FORMULATION: TABLET
     Route: 048
     Dates: start: 20080801, end: 20080819
  3. ANAFRANIL [Suspect]
     Indication: DEPRESSION
     Dosage: 25 MG ORAL FORMULATION: TABLET
     Route: 048
     Dates: start: 20080801, end: 20080819
  4. DIART (AZOSEMIDE) [Concomitant]

REACTIONS (3)
  - BACTERIAL TEST POSITIVE [None]
  - DIFFUSE ALVEOLAR DAMAGE [None]
  - INTERSTITIAL LUNG DISEASE [None]
